FAERS Safety Report 17500518 (Version 1)
Quarter: 2020Q1

REPORT INFORMATION
  Report Type: Spontaneous
  Country: FR (occurrence: FR)
  Receive Date: 20200305
  Receipt Date: 20200305
  Transmission Date: 20200409
  Serious: Yes (Hospitalization)
  Sender: FDA-Public Use
  Company Number: NVSC2020FR062093

PATIENT
  Age: 17 Year
  Sex: Female
  Weight: 54.4 kg

DRUGS (1)
  1. AMOXICILLINE [Suspect]
     Active Substance: AMOXICILLIN
     Indication: SUICIDE ATTEMPT
     Dosage: 14 G, 1 TOTAL
     Route: 048
     Dates: start: 20191118

REACTIONS (3)
  - Nausea [Recovered/Resolved]
  - Abdominal pain upper [Recovered/Resolved]
  - Intentional overdose [Recovered/Resolved]

NARRATIVE: CASE EVENT DATE: 20191118
